FAERS Safety Report 5314159-5 (Version None)
Quarter: 2007Q2

REPORT INFORMATION
  Report Type: 
  Country: None (occurrence: None)
  Receive Date: 20070501
  Receipt Date: 20070417
  Transmission Date: 20071010
  Serious: No
  Sender: FDA-Public Use
  Company Number: ZA-ELI_LILLY_AND_COMPANY-ZA200704004116

PATIENT
  Age: 55 Year
  Sex: Female

DRUGS (3)
  1. CYMBALTA [Suspect]
     Indication: MAJOR DEPRESSION
     Dosage: 60 MG, DAILY (1/D)
     Route: 048
     Dates: start: 20061006
  2. LANSOPRAZOLE [Concomitant]
     Indication: REFLUX OESOPHAGITIS
     Dosage: 15 MG, DAILY (1/D)
     Route: 048
  3. ESTRO-PAUSE N [Concomitant]
     Indication: MENOPAUSAL SYMPTOMS
     Route: 048

REACTIONS (2)
  - LIVER FUNCTION TEST ABNORMAL [None]
  - NIGHTMARE [None]
